FAERS Safety Report 21655841 (Version 1)
Quarter: 2022Q4

REPORT INFORMATION
  Report Type: Spontaneous
  Country: DE (occurrence: DE)
  Receive Date: 20221129
  Receipt Date: 20221129
  Transmission Date: 20230112
  Serious: Yes (Hospitalization)
  Sender: FDA-Public Use
  Company Number: None

PATIENT
  Age: 70 Year
  Sex: Female
  Weight: 66 kg

DRUGS (7)
  1. PRASUGREL [Suspect]
     Active Substance: PRASUGREL
     Indication: Product used for unknown indication
     Dosage: 10 MG, 1-0-0-0
  2. ASPIRIN [Suspect]
     Active Substance: ASPIRIN
     Indication: Product used for unknown indication
     Dosage: 100 MG, 0-1-0-0
  3. ATORVASTATIN [Concomitant]
     Active Substance: ATORVASTATIN
     Dosage: 40 MG, 0-0-1-0
  4. LOSARTAN [Concomitant]
     Active Substance: LOSARTAN
     Dosage: 50 MG, 1-0-0-0
  5. LEVOTHYROXINE SODIUM [Concomitant]
     Active Substance: LEVOTHYROXINE SODIUM
     Dosage: 100 MCG, 1-0-0-0
  6. METOPROLOL [Concomitant]
     Active Substance: METOPROLOL
     Dosage: 23.75 MG, 1-0-1-0
  7. TRIMIPRAMINE MALEATE [Concomitant]
     Active Substance: TRIMIPRAMINE MALEATE
     Dosage: STRENGTH: 25MG, 0-0-0-1

REACTIONS (4)
  - Dyspnoea [Unknown]
  - Haematoma [Unknown]
  - Pallor [Unknown]
  - General physical health deterioration [Unknown]
